FAERS Safety Report 15850183 (Version 1)
Quarter: 2019Q1

REPORT INFORMATION
  Report Type: Spontaneous
  Country: US (occurrence: US)
  Receive Date: 20190121
  Receipt Date: 20190121
  Transmission Date: 20190417
  Serious: No
  Sender: FDA-Public Use
  Company Number: US-BEH-2019098639

PATIENT
  Sex: Female

DRUGS (12)
  1. ALREX                              /00595201/ [Concomitant]
     Active Substance: ALPRAZOLAM
     Route: 065
  2. OMEGA 3                            /01333901/ [Concomitant]
     Active Substance: FISH OIL\TOCOPHEROL
     Dosage: 1200 MG, UNK
     Route: 065
  3. FLAXSEED [Concomitant]
     Active Substance: FLAX SEED
     Route: 065
  4. THERATEARS [Concomitant]
     Active Substance: CARBOXYMETHYLCELLULOSE SODIUM
     Route: 065
  5. TYLENOL EXTRA STRENGTH [Concomitant]
     Active Substance: ACETAMINOPHEN
     Dosage: 500 MG, UNK
     Route: 065
  6. VITAMIN D                          /00107901/ [Concomitant]
     Active Substance: ERGOCALCIFEROL
     Dosage: 2000 IU, UNK
     Route: 065
  7. HIZENTRA [Suspect]
     Active Substance: HUMAN IMMUNOGLOBULIN G
     Indication: IMMUNODEFICIENCY COMMON VARIABLE
     Dosage: UNK
     Route: 058
     Dates: start: 2016
  8. CHARCOCAPS [Concomitant]
     Dosage: 260 MG, UNK
     Route: 065
  9. LEVOTHYROXINE. [Concomitant]
     Active Substance: LEVOTHYROXINE
     Dosage: 112 ?G, UNK
     Route: 065
  10. ROLAIDS                            /00069401/ [Concomitant]
     Active Substance: DIHYDROXYALUMINUM SODIUM CARBONATE
     Dosage: 110 MG, UNK
     Route: 065
  11. AMITRIPTYLIN [Concomitant]
     Active Substance: AMITRIPTYLINE
     Dosage: 25 MG, UNK
     Route: 065
  12. LIFITEGRAST [Concomitant]
     Active Substance: LIFITEGRAST
     Route: 065

REACTIONS (5)
  - Arthralgia [Unknown]
  - Ill-defined disorder [Unknown]
  - Sputum discoloured [Unknown]
  - Thyroid disorder [Unknown]
  - Weight increased [Unknown]
